FAERS Safety Report 9364073 (Version 1)
Quarter: 2013Q2

REPORT INFORMATION
  Report Type: Spontaneous
  Country: RU (occurrence: RU)
  Receive Date: 20130624
  Receipt Date: 20130624
  Transmission Date: 20140414
  Serious: Yes (Other)
  Sender: FDA-Public Use
  Company Number: RU-BAYER-2013-074193

PATIENT
  Age: 22 Year
  Sex: Female

DRUGS (2)
  1. YAZ [Suspect]
     Indication: CONTRACEPTION
     Dosage: UNK
     Route: 048
     Dates: start: 201211, end: 201211
  2. YAZ [Suspect]
     Indication: OVARIAN CYST

REACTIONS (2)
  - Colitis ulcerative [Recovering/Resolving]
  - Large intestinal ulcer haemorrhage [Recovering/Resolving]
